FAERS Safety Report 9196810 (Version 1)
Quarter: 2013Q1

REPORT INFORMATION
  Report Type: Spontaneous
  Country: JP (occurrence: JP)
  Receive Date: 20130328
  Receipt Date: 20130328
  Transmission Date: 20140127
  Serious: No
  Sender: FDA-Public Use
  Company Number: JP-UCBSA-081680

PATIENT
  Age: 60 Year
  Sex: Male

DRUGS (1)
  1. E KEPPRA [Suspect]
     Route: 048

REACTIONS (1)
  - Platelet count decreased [Not Recovered/Not Resolved]
